FAERS Safety Report 7906640-7 (Version None)
Quarter: 2011Q4

REPORT INFORMATION
  Report Type: 
  Country: None (occurrence: None)
  Receive Date: 20111109
  Receipt Date: 20111109
  Transmission Date: 20120403
  Serious: Yes (Life-Threatening, Disabling)
  Sender: FDA-Public Use
  Company Number: None

PATIENT
  Sex: Male
  Weight: 82.1011 kg

DRUGS (2)
  1. ZOCOR [Suspect]
     Indication: BLOOD CHOLESTEROL
     Dosage: 1 DAY
     Dates: start: 20100101, end: 20110101
  2. VYTORIN [Suspect]

REACTIONS (5)
  - PAIN [None]
  - SCIATICA [None]
  - FATIGUE [None]
  - DIZZINESS [None]
  - BACK PAIN [None]
